FAERS Safety Report 15389416 (Version 1)
Quarter: 2018Q3

REPORT INFORMATION
  Report Type: Spontaneous
  Country: DE (occurrence: DE)
  Receive Date: 20180917
  Receipt Date: 20180917
  Transmission Date: 20181010
  Serious: Yes (Hospitalization, Other)
  Sender: FDA-Public Use
  Company Number: DE-DRREDDYS-GER/GER/18/0103963

PATIENT
  Age: 64 Year
  Sex: Female
  Weight: 105 kg

DRUGS (14)
  1. SULFASALAZINE DELAYED?RELEASE [Concomitant]
     Active Substance: SULFASALAZINE
     Indication: ARTHROPATHY
     Dosage: DAILY DOSE: 1000 MG MILLGRAM(S) EVERY DAYS
     Route: 048
     Dates: start: 20000701
  2. ALOXI [Concomitant]
     Active Substance: PALONOSETRON HYDROCHLORIDE
     Indication: NAUSEA
     Route: 048
     Dates: start: 20150916, end: 20151216
  3. DOCETAXEL. [Suspect]
     Active Substance: DOCETAXEL
     Dosage: DAILY DOSE: 112.5 MG MILLGRAM(S) EVERY 3 WEEKS
     Route: 042
     Dates: start: 20151125
  4. HERCEPTIN [Suspect]
     Active Substance: TRASTUZUMAB
     Dosage: DAILY DOSE: 600 MG MILLGRAM(S) EVERY 3 WEEKS
     Route: 042
     Dates: start: 20151028, end: 20151216
  5. PERTUZUMAB. [Suspect]
     Active Substance: PERTUZUMAB
     Indication: HER-2 POSITIVE BREAST CANCER
     Dosage: LOADING DOSE
     Route: 042
     Dates: start: 20150916, end: 20150916
  6. DEXAMETHASON [Concomitant]
     Active Substance: DEXAMETHASONE
     Indication: NAUSEA
     Route: 042
     Dates: start: 20150916, end: 20151216
  7. AMITRIPTYLIN [Concomitant]
     Active Substance: AMITRIPTYLINE
     Indication: ARTHROPATHY
     Dosage: DAILY DOSE: 25 MG MILLGRAM(S) EVERY DAYS
     Dates: start: 20000701
  8. DOCETAXEL. [Suspect]
     Active Substance: DOCETAXEL
     Indication: BREAST CANCER
     Dosage: DAILY DOSE: 150 MG MILLGRAM(S) EVERY 3 WEEKS
     Route: 042
     Dates: start: 20150916, end: 20151028
  9. PERJETA [Suspect]
     Active Substance: PERTUZUMAB
     Indication: PRODUCT USED FOR UNKNOWN INDICATION
     Dosage: DAILY DOSE: 420 MG MILLGRAM(S) EVERY 3 WEEKS
     Route: 042
     Dates: start: 20151007
  10. BISOPROLOL [Concomitant]
     Active Substance: BISOPROLOL
     Indication: HYPERTENSION
     Dosage: DAILY DOSE: 5 MG MILLGRAM(S) EVERY DAYS
     Route: 048
     Dates: start: 20050701
  11. PANTOPRAZOLE [Concomitant]
     Active Substance: PANTOPRAZOLE
     Indication: ABDOMINAL PAIN UPPER
     Dosage: DAILY DOSE: 40 MG MILLGRAM(S) EVERY DAYS
     Route: 048
     Dates: start: 2000
  12. HERCEPTIN [Suspect]
     Active Substance: TRASTUZUMAB
     Indication: HER-2 POSITIVE BREAST CANCER
     Dosage: DAILY DOSE: 630 MG MILLGRAM(S) EVERY 3 WEEKS
     Route: 042
     Dates: start: 20151007, end: 20151007
  13. HERCEPTIN [Suspect]
     Active Substance: TRASTUZUMAB
     Route: 042
     Dates: start: 20150916, end: 20150916
  14. METHOTREXATE. [Concomitant]
     Active Substance: METHOTREXATE
     Indication: ARTHROPATHY
     Dosage: DAILY DOSE: 15 MG MILLGRAM(S) EVERY WEEKS
     Dates: start: 20000701

REACTIONS (9)
  - Ascites [Not Recovered/Not Resolved]
  - Constipation [Recovered/Resolved]
  - Actinic keratosis [Recovered/Resolved]
  - Alopecia [Recovered/Resolved]
  - Pyrexia [Recovered/Resolved]
  - Dyspnoea [Recovering/Resolving]
  - Nail disorder [Recovered/Resolved]
  - Nausea [Recovered/Resolved]
  - Peripheral sensory neuropathy [Not Recovered/Not Resolved]

NARRATIVE: CASE EVENT DATE: 20150916
